FAERS Safety Report 16630583 (Version 2)
Quarter: 2019Q3

REPORT INFORMATION
  Report Type: Spontaneous
  Country: TR (occurrence: TR)
  Receive Date: 20190725
  Receipt Date: 20190725
  Transmission Date: 20191004
  Serious: Yes (Death, Hospitalization)
  Sender: FDA-Public Use
  Company Number: TR-ABBVIE-19K-161-2865816-00

PATIENT
  Age: 78 Year
  Sex: Male
  Weight: 76 kg

DRUGS (2)
  1. VIEKIRAX [Suspect]
     Active Substance: OMBITASVIR\PARITAPREVIR\RITONAVIR
     Indication: CHRONIC HEPATITIS C
     Dosage: 1X2
     Route: 048
     Dates: start: 20190528, end: 20190708
  2. DASABUVIR [Suspect]
     Active Substance: DASABUVIR
     Indication: CHRONIC HEPATITIS C
     Route: 048
     Dates: start: 20190528, end: 20190708

REACTIONS (5)
  - Blood creatinine increased [Fatal]
  - Blood sodium increased [Fatal]
  - Blood potassium increased [Fatal]
  - Condition aggravated [Fatal]
  - Renal impairment [Fatal]

NARRATIVE: CASE EVENT DATE: 2019
